FAERS Safety Report 6753735-X (Version None)
Quarter: 2010Q2

REPORT INFORMATION
  Report Type: 
  Country: None (occurrence: None)
  Receive Date: 20100603
  Receipt Date: 20100526
  Transmission Date: 20101027
  Serious: Yes (Death)
  Sender: FDA-Public Use
  Company Number: CO-ROCHE-705211

PATIENT
  Sex: Female

DRUGS (2)
  1. AVASTIN [Suspect]
     Indication: BREAST CANCER
     Dosage: DOSE FORM: INFUSION
     Route: 042
     Dates: start: 20091130, end: 20100516
  2. TRAMADOL HCL [Concomitant]
     Indication: PAIN
     Dosage: AS REPORTED, DOSE: DROPS, FREQUENCY: PRN
     Route: 048

REACTIONS (1)
  - DISEASE PROGRESSION [None]
